FAERS Safety Report 15106384 (Version 2)
Quarter: 2018Q3

REPORT INFORMATION
  Report Type: Spontaneous
  Country: FR (occurrence: FR)
  Receive Date: 20180704
  Receipt Date: 20180716
  Transmission Date: 20181010
  Serious: Yes (Hospitalization)
  Sender: FDA-Public Use
  Company Number: FR-TEVA-2018-FR-919192

PATIENT
  Age: 47 Year
  Sex: Male

DRUGS (6)
  1. OXALIPLATIN. [Suspect]
     Active Substance: OXALIPLATIN
     Indication: METASTASES TO PERITONEUM
     Dosage: PART OF HIPEC REGIMEN?GIVEN AT 42.5 DEG C OVER 30 MINUTES
     Route: 033
  2. CPT?11 [Concomitant]
     Active Substance: IRINOTECAN
     Indication: ADENOCARCINOMA OF COLON
     Dosage: PART OF HIPEC REGIMEN?GIVEN AT 42.5 DEG C
     Route: 033
  3. 5?FLUOROURACIL [Concomitant]
     Active Substance: FLUOROURACIL
     Indication: ADENOCARCINOMA OF COLON
     Dosage: PART OF FOLFOX REGIMEN. PART OF HIPEC REGIMEN?GIVEN AT 42.5 DEG C
     Route: 041
  4. CPT?11 [Concomitant]
     Active Substance: IRINOTECAN
     Indication: METASTASES TO PERITONEUM
  5. FOLINIC ACID [Concomitant]
     Active Substance: LEUCOVORIN
     Indication: ADENOCARCINOMA OF COLON
     Dosage: PART OF FOLFOX REGIMEN. PART OF HIPEC REGIMEN?GIVEN AT 42.5 DEG C
     Route: 041
  6. OXALIPLATIN. [Suspect]
     Active Substance: OXALIPLATIN
     Indication: ADENOCARCINOMA OF COLON
     Dosage: SIX INFUSIONS TOTAL DOSE 680 MG/M2
     Route: 050

REACTIONS (3)
  - Trismus [Unknown]
  - Acute respiratory failure [Recovered/Resolved]
  - Organising pneumonia [Recovered/Resolved]
